FAERS Safety Report 10253045 (Version 2)
Quarter: 2014Q3

REPORT INFORMATION
  Report Type: Spontaneous
  Country: FR (occurrence: FR)
  Receive Date: 20140623
  Receipt Date: 20140808
  Transmission Date: 20150326
  Serious: Yes (Hospitalization, Disabling, Congenital Anomaly)
  Sender: FDA-Public Use
  Company Number: FR-ELI_LILLY_AND_COMPANY-FR201406004110

PATIENT
  Age: 0 Year

DRUGS (12)
  1. THERALENE [Suspect]
     Active Substance: TRIMEPRAZINE
     Indication: DEPRESSION
     Dosage: 10 MG, UNKNOWN
     Route: 065
     Dates: end: 20131115
  2. ABILIFY [Suspect]
     Active Substance: ARIPIPRAZOLE
     Indication: DEPRESSION
     Dosage: 15 MG, QD
     Route: 048
     Dates: end: 20131115
  3. ABILIFY [Suspect]
     Active Substance: ARIPIPRAZOLE
     Indication: DEPRESSION
     Dosage: 15 MG, QD
     Route: 048
     Dates: end: 20131115
  4. DEPAKOTE [Suspect]
     Active Substance: DIVALPROEX SODIUM
     Indication: DEPRESSION
     Dosage: 500 MG, QD
     Route: 048
     Dates: end: 20131115
  5. VALIUM [Suspect]
     Active Substance: DIAZEPAM
     Indication: DEPRESSION
     Dosage: 15 MG, QD
     Route: 048
     Dates: end: 20131115
  6. VALDOXAN [Suspect]
     Active Substance: AGOMELATINE
     Indication: DEPRESSION
     Dosage: 50 MG, QD
     Route: 048
     Dates: end: 20131115
  7. DEPAKOTE [Suspect]
     Active Substance: DIVALPROEX SODIUM
     Indication: DEPRESSION
     Dosage: 500 MG, QD
     Route: 048
     Dates: end: 20131115
  8. THERALENE [Suspect]
     Active Substance: TRIMEPRAZINE
     Indication: DEPRESSION
     Dosage: 10 MG, UNKNOWN
     Route: 065
     Dates: end: 20131115
  9. VALIUM [Suspect]
     Active Substance: DIAZEPAM
     Indication: DEPRESSION
     Dosage: 15 MG, QD
     Route: 048
     Dates: end: 20131115
  10. PROZAC [Suspect]
     Active Substance: FLUOXETINE HYDROCHLORIDE
     Indication: DEPRESSION
     Dosage: 40 MG, QD
     Route: 048
     Dates: end: 20131115
  11. PROZAC [Suspect]
     Active Substance: FLUOXETINE HYDROCHLORIDE
     Indication: DEPRESSION
     Dosage: 40 MG, QD
     Route: 048
     Dates: end: 20131115
  12. VALDOXAN [Suspect]
     Active Substance: AGOMELATINE
     Indication: DEPRESSION
     Dosage: 50 MG, QD
     Route: 048
     Dates: end: 20131115

REACTIONS (3)
  - Pyrexia [Unknown]
  - Foetal exposure during pregnancy [Unknown]
  - Meningomyelocele [Unknown]

NARRATIVE: CASE EVENT DATE: 20140304
